FAERS Safety Report 8896644 (Version 1)
Quarter: 2012Q4

REPORT INFORMATION
  Report Type: Spontaneous
  Country: US (occurrence: None)
  Receive Date: 20121101
  Receipt Date: 20121101
  Transmission Date: 20130627
  Serious: Yes (Other)
  Sender: FDA-Public Use
  Company Number: 1208-416

PATIENT
  Age: 76 Year
  Sex: Female

DRUGS (1)
  1. EYLEA [Suspect]
     Indication: EXUDATIVE SENILE MACULAR DEGENERATION OF RETINA
     Dosage: Intravitreal
     Dates: start: 20120327

REACTIONS (1)
  - Visual acuity reduced [None]
